FAERS Safety Report 25809567 (Version 3)
Quarter: 2025Q4

REPORT INFORMATION
  Report Type: Spontaneous
  Country: US (occurrence: US)
  Receive Date: 20250916
  Receipt Date: 20251208
  Transmission Date: 20260118
  Serious: Yes (Other)
  Sender: SANOFI AVENTIS
  Company Number: US-SA-2025SA275849

PATIENT
  Age: 75 Year
  Sex: Female

DRUGS (1)
  1. DUPIXENT [Suspect]
     Active Substance: DUPILUMAB
     Indication: Neurodermatitis
     Dosage: 300 MG, QOW
     Route: 058

REACTIONS (5)
  - Neoplasm malignant [Unknown]
  - Retinal disorder [Unknown]
  - Product dose omission issue [Unknown]
  - Fatigue [Unknown]
  - Joint injury [Unknown]

NARRATIVE: CASE EVENT DATE: 20250101
